FAERS Safety Report 9355781 (Version 1)
Quarter: 2013Q2

REPORT INFORMATION
  Report Type: Spontaneous
  Country: US (occurrence: US)
  Receive Date: 20130619
  Receipt Date: 20130619
  Transmission Date: 20140414
  Serious: Yes (Other)
  Sender: FDA-Public Use
  Company Number: US-TEVA-413105USA

PATIENT
  Age: 30 Year
  Sex: Male

DRUGS (5)
  1. NALTREXONE HYDROCHLORIDE [Suspect]
     Indication: DRUG DETOXIFICATION
  2. PROPOFOL [Suspect]
     Indication: DRUG DETOXIFICATION
  3. NALOXONE [Suspect]
     Indication: DRUG DETOXIFICATION
  4. MIDAZOLAM [Suspect]
     Indication: DRUG DETOXIFICATION
  5. ISOFLURANE [Suspect]
     Indication: DRUG DETOXIFICATION

REACTIONS (4)
  - Pneumomediastinum [Recovered/Resolved]
  - Pulmonary oedema [Recovered/Resolved]
  - Respiratory distress [Recovered/Resolved]
  - Mental impairment [Recovered/Resolved]
